FAERS Safety Report 5669412-2 (Version None)
Quarter: 2008Q1

REPORT INFORMATION
  Report Type: 
  Country: None (occurrence: None)
  Receive Date: 20080317
  Receipt Date: 20080310
  Transmission Date: 20080703
  Serious: Yes (Death, Hospitalization)
  Sender: FDA-Public Use
  Company Number: A0699231A

PATIENT
  Age: 48 Year
  Sex: Male

DRUGS (3)
  1. ADVAIR DISKUS 100/50 [Suspect]
     Indication: ASTHMA
     Dosage: 1PUFF TWICE PER DAY
     Route: 055
     Dates: start: 20050707, end: 20060329
  2. ALBUTEROL [Concomitant]
  3. IMODIUM [Concomitant]

REACTIONS (3)
  - ANOXIC ENCEPHALOPATHY [None]
  - LUNG HYPERINFLATION [None]
  - RESPIRATORY ARREST [None]
